FAERS Safety Report 10436986 (Version 3)
Quarter: 2014Q3

REPORT INFORMATION
  Report Type: Spontaneous
  Country: US (occurrence: US)
  Receive Date: 20140908
  Receipt Date: 20140929
  Transmission Date: 20150326
  Serious: Yes (Other)
  Sender: FDA-Public Use
  Company Number: US-PFIZER INC-2014244956

PATIENT
  Age: 83 Year
  Sex: Female

DRUGS (1)
  1. LIPITOR [Suspect]
     Active Substance: ATORVASTATIN CALCIUM
     Indication: BLOOD CHOLESTEROL INCREASED
     Dosage: 20MG ONCE PER DAY (CUT 20 MG TABLET IN HALF TO OBTAIN 10 MG)

REACTIONS (4)
  - Anxiety [Unknown]
  - Blood pressure increased [Unknown]
  - Weight increased [Unknown]
  - Fall [Unknown]
